FAERS Safety Report 8839685 (Version 1)
Quarter: 2012Q4

REPORT INFORMATION
  Report Type: Spontaneous
  Country: US (occurrence: None)
  Receive Date: 20121012
  Receipt Date: 20121012
  Transmission Date: 20130627
  Serious: Yes (Disabling)
  Sender: FDA-Public Use
  Company Number: None

PATIENT
  Age: 78 Year
  Sex: Male
  Weight: 104.33 kg

DRUGS (2)
  1. TYLENOL ARTHRITIS PAIN [Suspect]
     Indication: PAIN RELIEF
     Dates: start: 20120927
  2. TYLENOL ARTHRITIS PAIN [Suspect]
     Indication: PAIN RELIEF
     Dates: start: 20120928

REACTIONS (5)
  - Pain [None]
  - Mobility decreased [None]
  - Nausea [None]
  - Sedation [None]
  - Muscular weakness [None]
